FAERS Safety Report 21489598 (Version 1)
Quarter: 2022Q4

REPORT INFORMATION
  Report Type: Spontaneous
  Country: JP (occurrence: JP)
  Receive Date: 20221021
  Receipt Date: 20221021
  Transmission Date: 20230113
  Serious: Yes (Other)
  Sender: FDA-Public Use
  Company Number: JP-BRISTOL-MYERS SQUIBB COMPANY-BMS-2021-094017

PATIENT
  Age: 89 Year
  Sex: Female

DRUGS (3)
  1. HYDREA [Suspect]
     Active Substance: HYDROXYUREA
     Indication: Polycythaemia vera
     Dosage: UNK
     Route: 048
     Dates: start: 1998
  2. HYDREA [Suspect]
     Active Substance: HYDROXYUREA
     Dosage: 500-1500MG/DAY
     Route: 048
     Dates: start: 2008
  3. RUXOLITINIB PHOSPHATE [Suspect]
     Active Substance: RUXOLITINIB PHOSPHATE
     Indication: Product used for unknown indication
     Route: 065

REACTIONS (2)
  - Squamous cell carcinoma of skin [Recovered/Resolved]
  - Bowen^s disease [Recovered/Resolved]

NARRATIVE: CASE EVENT DATE: 20060101
